FAERS Safety Report 4661868-7 (Version None)
Quarter: 2005Q2

REPORT INFORMATION
  Report Type: 
  Country: None (occurrence: None)
  Receive Date: 20050513
  Receipt Date: 20050509
  Transmission Date: 20051028
  Serious: Yes (Hospitalization)
  Sender: FDA-Public Use
  Company Number: FR-MERCK-0505FRA00018

PATIENT
  Age: 68 Year
  Sex: Male

DRUGS (3)
  1. ZOCOR [Suspect]
     Route: 048
  2. FLUINDIONE [Suspect]
     Route: 048
     Dates: end: 20050207
  3. FUROSEMIDE [Concomitant]
     Route: 048

REACTIONS (12)
  - ABDOMINAL DISTENSION [None]
  - ARRHYTHMIA [None]
  - BRONCHOSPASM [None]
  - DRUG INTERACTION [None]
  - HAEMATOMA [None]
  - INTERNATIONAL NORMALISED RATIO INCREASED [None]
  - INTESTINAL DILATATION [None]
  - NORMOCHROMIC NORMOCYTIC ANAEMIA [None]
  - RENAL FAILURE [None]
  - RESPIRATORY FAILURE [None]
  - SUBILEUS [None]
  - WHITE BLOOD CELLS URINE POSITIVE [None]
